FAERS Safety Report 14795566 (Version 1)
Quarter: 2018Q2

REPORT INFORMATION
  Report Type: Report from Study
  Country: BR (occurrence: BR)
  Receive Date: 20180423
  Receipt Date: 20180423
  Transmission Date: 20180711
  Serious: Yes (Hospitalization, Other)
  Sender: FDA-Public Use
  Company Number: PHHY2017BR039395

PATIENT
  Sex: Female
  Weight: 45 kg

DRUGS (7)
  1. VITAMIN B COMPLEX [Concomitant]
     Active Substance: CYANOCOBALAMIN\DEXPANTHENOL\NIACINAMIDE\PYRIDOXINE HYDROCHLORIDE\RIBOFLAVIN 5^-PHOSPHATE SODIUM\THIAMINE HYDROCHLORIDE\VITAMIN B COMPLEX
     Indication: PRODUCT USED FOR UNKNOWN INDICATION
     Dosage: 5 ML, QD START 5 YEARS AGO
     Route: 048
  2. EXELON [Concomitant]
     Active Substance: RIVASTIGMINE TARTRATE
     Indication: DEMENTIA ALZHEIMER^S TYPE
     Dosage: 1 ML, BID (START 3 MONTHS AGO)
     Route: 048
  3. DONILA [Suspect]
     Active Substance: DONEPEZIL HYDROCHLORIDE
     Dosage: 100 MG, UNK
     Route: 065
  4. QUETROS [Concomitant]
     Active Substance: QUETIAPINE
     Indication: DEMENTIA ALZHEIMER^S TYPE
     Dosage: 1 DF, QD (START 5 YEARS AGO)
     Route: 048
  5. DOMPERIX [Concomitant]
     Indication: REFLUX GASTRITIS
     Dosage: 10 ML, BID START 4 MONTHS AGO
     Route: 048
  6. DONILA [Suspect]
     Active Substance: DONEPEZIL HYDROCHLORIDE
     Indication: PRODUCT USED FOR UNKNOWN INDICATION
     Dosage: 50 MG, UNK
     Route: 065
  7. EXELON PATCH [Suspect]
     Active Substance: RIVASTIGMINE
     Indication: PRODUCT USED FOR UNKNOWN INDICATION
     Dosage: 4.6 MG, PATCH 5 (CM2), QD
     Route: 062
     Dates: start: 2017

REACTIONS (10)
  - Gait inability [Unknown]
  - Headache [Recovering/Resolving]
  - Hyponatraemia [Recovering/Resolving]
  - Chikungunya virus infection [Unknown]
  - Snoring [Recovering/Resolving]
  - Depression [Recovering/Resolving]
  - Cerebrovascular accident [Recovering/Resolving]
  - Somnolence [Recovering/Resolving]
  - Choking [Recovering/Resolving]
  - Product adhesion issue [Unknown]
